FAERS Safety Report 10508187 (Version 1)
Quarter: 2014Q4

REPORT INFORMATION
  Report Type: Report from Study
  Country: US (occurrence: US)
  Receive Date: 20141009
  Receipt Date: 20141009
  Transmission Date: 20150528
  Serious: Yes (Hospitalization, Other)
  Sender: FDA-Public Use
  Company Number: PHEH2014US019181

PATIENT
  Age: 59 Year
  Sex: Male

DRUGS (2)
  1. NEORAL [Suspect]
     Active Substance: CYCLOSPORINE
     Indication: ACUTE MYELOID LEUKAEMIA (IN REMISSION)
     Dosage: 400 MG, BID
     Route: 048
  2. NEORAL [Suspect]
     Active Substance: CYCLOSPORINE
     Indication: COMPLICATIONS OF BONE MARROW TRANSPLANT

REACTIONS (13)
  - Hypotension [Unknown]
  - Dyspnoea [Unknown]
  - Generalised oedema [Unknown]
  - Seborrhoeic dermatitis [Unknown]
  - Fatigue [Unknown]
  - Graft versus host disease in gastrointestinal tract [Unknown]
  - Immunosuppressant drug level decreased [Unknown]
  - Pityriasis [Unknown]
  - Diarrhoea [Unknown]
  - Hiatus hernia [Unknown]
  - Rash [Unknown]
  - Blood creatinine increased [Unknown]
  - Graft versus host disease in skin [Unknown]

NARRATIVE: CASE EVENT DATE: 201301
